FAERS Safety Report 7921282-5 (Version None)
Quarter: 2011Q4

REPORT INFORMATION
  Report Type: 
  Country: None (occurrence: None)
  Receive Date: 20111117
  Receipt Date: 20111115
  Transmission Date: 20120403
  Serious: Yes (Hospitalization)
  Sender: FDA-Public Use
  Company Number: US-JNJFOC-20110709201

PATIENT
  Sex: Male
  Weight: 94.35 kg

DRUGS (2)
  1. PRADAXA [Concomitant]
     Indication: COAGULOPATHY
  2. REMICADE [Suspect]
     Indication: RHEUMATOID ARTHRITIS
     Route: 042
     Dates: end: 20110802

REACTIONS (10)
  - CARDIAC FAILURE CONGESTIVE [None]
  - ABNORMAL LOSS OF WEIGHT [None]
  - PORTAL VEIN THROMBOSIS [None]
  - CARDIOMYOPATHY [None]
  - KNEE ARTHROPLASTY [None]
  - SEPSIS [None]
  - FACTOR V DEFICIENCY [None]
  - HAEMATOMA [None]
  - PNEUMONIA [None]
  - PULMONARY THROMBOSIS [None]
